FAERS Safety Report 6424607-5 (Version None)
Quarter: 2009Q4

REPORT INFORMATION
  Report Type: 
  Country: None (occurrence: None)
  Receive Date: 20091103
  Receipt Date: 20091026
  Transmission Date: 20100525
  Serious: Yes (Death, Hospitalization, Other)
  Sender: FDA-Public Use
  Company Number: PHHY2009BR46553

PATIENT
  Age: 86 Year
  Sex: Male

DRUGS (5)
  1. FORASEQ [Suspect]
     Indication: PULMONARY FIBROSIS
  2. ADALAT [Concomitant]
     Indication: BLOOD PRESSURE ABNORMAL
     Dosage: UNK
  3. SUSTRATE [Concomitant]
  4. DEFLAZACORT [Concomitant]
  5. OPTIVE LUBRICANT EYE DROPS [Concomitant]
     Indication: GLAUCOMA

REACTIONS (8)
  - APPETITE DISORDER [None]
  - CARDIAC FAILURE [None]
  - DYSPNOEA [None]
  - HYPOTENSION [None]
  - MULTI-ORGAN FAILURE [None]
  - NEPHRITIS [None]
  - RESPIRATORY FAILURE [None]
  - SENILE DEMENTIA [None]
